FAERS Safety Report 14162681 (Version 1)
Quarter: 2017Q4

REPORT INFORMATION
  Report Type: Report from Study
  Country: US (occurrence: US)
  Receive Date: 20171106
  Receipt Date: 20171106
  Transmission Date: 20180321
  Serious: Yes (Other)
  Sender: FDA-Public Use
  Company Number: US-AMGEN-USASL2017164706

PATIENT
  Age: 68 Year
  Sex: Female

DRUGS (1)
  1. REPATHA [Suspect]
     Active Substance: EVOLOCUMAB
     Indication: PRODUCT USED FOR UNKNOWN INDICATION
     Dosage: UNK
     Route: 065

REACTIONS (7)
  - Fall [Unknown]
  - Concussion [Unknown]
  - Lung disorder [Not Recovered/Not Resolved]
  - Gait inability [Recovered/Resolved]
  - Spinal cord neoplasm [Recovered/Resolved]
  - Head injury [Unknown]
  - Contusion [Unknown]

NARRATIVE: CASE EVENT DATE: 2016
